FAERS Safety Report 12253249 (Version 1)
Quarter: 2016Q2

REPORT INFORMATION
  Report Type: Spontaneous
  Country: US (occurrence: US)
  Receive Date: 20160411
  Receipt Date: 20160411
  Transmission Date: 20160815
  Serious: Yes (Death, Hospitalization, Other)
  Sender: FDA-Public Use
  Company Number: US-GLAXOSMITHKLINE-US2016045644

PATIENT
  Age: 81 Year
  Sex: Male

DRUGS (6)
  1. ADVAIR DISKUS [Suspect]
     Active Substance: FLUTICASONE PROPIONATE\SALMETEROL XINAFOATE
     Indication: CHRONIC OBSTRUCTIVE PULMONARY DISEASE
     Dosage: 1 PUFF(S), BID
     Route: 055
     Dates: start: 2013, end: 20160116
  2. MORPHINE [Suspect]
     Active Substance: MORPHINE
     Indication: PRODUCT USED FOR UNKNOWN INDICATION
  3. ALBUTEROL. [Concomitant]
     Active Substance: ALBUTEROL
  4. LASIX [Concomitant]
     Active Substance: FUROSEMIDE
  5. PREDNISONE. [Concomitant]
     Active Substance: PREDNISONE
  6. LORAZEPAM. [Concomitant]
     Active Substance: LORAZEPAM

REACTIONS (8)
  - Dyspnoea [Recovered/Resolved]
  - Pneumothorax [Fatal]
  - Peripheral swelling [Recovered/Resolved]
  - Ligament sprain [Recovered/Resolved]
  - Pleural effusion [Not Recovered/Not Resolved]
  - Pneumonia [Recovered/Resolved]
  - Fall [Recovered/Resolved]
  - Lung carcinoma cell type unspecified recurrent [Fatal]

NARRATIVE: CASE EVENT DATE: 20150612
